FAERS Safety Report 14736875 (Version 2)
Quarter: 2018Q2

REPORT INFORMATION
  Report Type: Spontaneous
  Country: FR (occurrence: FR)
  Receive Date: 20180409
  Receipt Date: 20180409
  Transmission Date: 20180711
  Serious: Yes (Other)
  Sender: FDA-Public Use
  Company Number: PHHY2018FR057384

PATIENT
  Age: 64 Year
  Sex: Male

DRUGS (2)
  1. PREDNISOLONE. [Suspect]
     Active Substance: PREDNISOLONE
     Indication: PRODUCT USED FOR UNKNOWN INDICATION
     Dosage: 80 MG, QD DOSE REDUCED AFTER 1 MONTH
     Route: 048
  2. NIVOLUMAB [Suspect]
     Active Substance: NIVOLUMAB
     Indication: LUNG ADENOCARCINOMA STAGE IV
     Dosage: 3 MG/KG, EVERY 15 DAYS (GIVEN ATLEAST FOR 4 MONTHS)
     Route: 065

REACTIONS (2)
  - Hyperthyroidism [Unknown]
  - Hemiparesis [Recovered/Resolved]
